FAERS Safety Report 9073976 (Version 1)
Quarter: 2013Q1

REPORT INFORMATION
  Report Type: Report from Study
  Country: US (occurrence: US)
  Receive Date: 20130129
  Receipt Date: 20130129
  Transmission Date: 20140127
  Serious: No
  Sender: FDA-Public Use
  Company Number: US-ABBOTT-12P-163-0918314-00

PATIENT
  Age: 53 Year
  Sex: Female

DRUGS (3)
  1. HUMIRA 40 MG/0.8 ML PEN [Suspect]
     Indication: PSORIATIC ARTHROPATHY
     Dates: start: 20120309
  2. WELLBUTRIN [Concomitant]
     Indication: DEPRESSION
  3. CALCIUM VIT D [Concomitant]
     Indication: MINERAL SUPPLEMENTATION

REACTIONS (2)
  - Chest pain [Recovering/Resolving]
  - Psoriasis [Recovering/Resolving]
